FAERS Safety Report 6656254-4 (Version None)
Quarter: 2010Q1

REPORT INFORMATION
  Report Type: 
  Country: None (occurrence: None)
  Receive Date: 20100329
  Receipt Date: 20100316
  Transmission Date: 20100710
  Serious: Yes (Other)
  Sender: FDA-Public Use
  Company Number: US-ELI_LILLY_AND_COMPANY-US201002002825

PATIENT
  Sex: Male

DRUGS (10)
  1. ALIMTA [Suspect]
     Indication: NON-SMALL CELL LUNG CANCER
     Dosage: 500 MG/M2, UNK
     Route: 042
  2. ALIMTA [Suspect]
     Dosage: 100 MG, UNK
  3. CARBOPLATIN [Concomitant]
     Indication: NON-SMALL CELL LUNG CANCER
  4. VITAMIN B-12 [Concomitant]
     Route: 030
  5. FOLATE [Concomitant]
     Route: 048
  6. ASPIRIN [Concomitant]
  7. M.V.I. [Concomitant]
  8. LIPITOR [Concomitant]
  9. GLUCOSAMINE [Concomitant]
  10. VITAMIN C [Concomitant]

REACTIONS (2)
  - CARDIAC DISORDER [None]
  - VENTRICULAR TACHYCARDIA [None]
